FAERS Safety Report 23052424 (Version 1)
Quarter: 2023Q4

REPORT INFORMATION
  Report Type: Report from Study
  Country: US (occurrence: US)
  Receive Date: 20231011
  Receipt Date: 20231011
  Transmission Date: 20240110
  Serious: Yes (Other)
  Sender: FDA-Public Use
  Company Number: US-ABBVIE-5277266

PATIENT
  Age: 70 Year
  Sex: Female

DRUGS (29)
  1. HUMIRA [Suspect]
     Active Substance: ADALIMUMAB
     Indication: Crohn^s disease
     Route: 058
     Dates: start: 202305
  2. HUMIRA [Suspect]
     Active Substance: ADALIMUMAB
     Route: 058
     Dates: start: 20210115, end: 202303
  3. LEVALBUTEROL [Concomitant]
     Active Substance: LEVALBUTEROL
     Indication: Product used for unknown indication
     Dosage: NEBULIZATION QSH
  4. IPRATROPIUM [Concomitant]
     Active Substance: IPRATROPIUM
     Indication: Product used for unknown indication
     Dosage: NEBULIZATION
  5. MEROPENEM [Concomitant]
     Active Substance: MEROPENEM
     Indication: Product used for unknown indication
     Route: 042
  6. ADVAIR HFA [Concomitant]
     Active Substance: FLUTICASONE PROPIONATE\SALMETEROL XINAFOATE
     Indication: Product used for unknown indication
     Dosage: 230-21 MCG/ACT INHALER, TAKE 2 PUFFS BY MOUTH, INHALE AS NEEDED
  7. ALBUTEROL SULFATE [Concomitant]
     Active Substance: ALBUTEROL SULFATE
     Indication: Product used for unknown indication
     Dosage: TAKE 2 PUFFS BY MOUTH, EVERY 6 HOURS AS NEEDED FOR WHEEZE, 108 (90 BASE) MCG/ACT INHALER
  8. CALCIUM CARBONATE\CHOLECALCIFEROL [Concomitant]
     Active Substance: CALCIUM CARBONATE\CHOLECALCIFEROL
     Indication: Product used for unknown indication
     Dosage: EVERY MORNING 600 MG IN AM, 600 MG PM
     Route: 048
  9. VITAMIN C [Concomitant]
     Active Substance: ASCORBIC ACID
     Indication: Product used for unknown indication
     Dosage: CVS, FORM STREGNTH: 1000 MG
     Route: 048
  10. LOZOL [Concomitant]
     Active Substance: INDAPAMIDE
     Indication: Product used for unknown indication
     Dosage: TAKE 1 TABLET (1.25 MG TOTAL) BY MOUTH EVERY MORNING
     Route: 048
  11. LEVOTHYROXINE [Concomitant]
     Active Substance: LEVOTHYROXINE
     Indication: Product used for unknown indication
     Dosage: 125 MCG
     Route: 048
  12. LEVOTHYROXINE [Concomitant]
     Active Substance: LEVOTHYROXINE
     Indication: Product used for unknown indication
     Dosage: TAKE 1 TABLET (112 MCG TOTAL} BY MOUTH EVERY 1 DAY AT 6 A.M
     Route: 048
  13. MEGACE [Concomitant]
     Active Substance: MEGESTROL ACETATE
     Indication: Product used for unknown indication
     Dosage: TAKE 1 TABLET (20 MG TOTAL) BY MOUTH EVERY 1 (ONE) DAY FOR 30 DAYS
     Route: 050
  14. VITAMINS [Concomitant]
     Active Substance: VITAMINS
     Indication: Product used for unknown indication
     Route: 048
  15. POTASSIUM CHLORIDE [Concomitant]
     Active Substance: POTASSIUM CHLORIDE
     Indication: Product used for unknown indication
     Dosage: TAKE 1 TABLET (10 MEQ TOTAL) BY MOUTH EVERY 1 (ONE) DAY
     Route: 048
  16. PROBIOTICS NOS [Concomitant]
     Active Substance: PROBIOTICS NOS
     Indication: Product used for unknown indication
     Dosage: IN THE MORNING AND AT BEDTIME
     Route: 048
  17. FORTEO [Concomitant]
     Active Substance: TERIPARATIDE
     Indication: Product used for unknown indication
     Dosage: INJECT 0.08 ML (20 MCG TOTAL) UNDER THE SKIN EVERY 1 (ONE) DAY OX: M81.0
  18. VITAMIN B12 [Concomitant]
     Active Substance: CYANOCOBALAMIN
     Indication: Product used for unknown indication
     Dosage: TAKE 1,000 MCG BY MOUTH
     Route: 048
  19. LEVAQUIN [Concomitant]
     Active Substance: LEVOFLOXACIN
     Indication: Product used for unknown indication
     Dosage: TAKE 1 TABLET (750 MG TOTAL) BY MOUTH EVERY 1 (ONE) DAY FOR 30 DAYS
     Route: 048
  20. ROXICODONE [Concomitant]
     Active Substance: OXYCODONE HYDROCHLORIDE
     Indication: Pain
     Dosage: TAKE 1 TABLET (5 MG TOTAL) BY MOUTH EVERY 4 (FOUR) HOURS AS NEEDED, ?5 MG IMMEDIATE RELEASE TABLET
     Route: 048
  21. ACETAMINOPHEN [Concomitant]
     Active Substance: ACETAMINOPHEN
     Indication: Product used for unknown indication
     Route: 048
  22. CYANOCOBALAMIN [Concomitant]
     Active Substance: CYANOCOBALAMIN
     Indication: Product used for unknown indication
     Dosage: 1000 MCG
     Route: 030
  23. LOVENOX [Concomitant]
     Active Substance: ENOXAPARIN SODIUM
     Indication: Product used for unknown indication
     Route: 058
  24. FAMOTIDINE [Concomitant]
     Active Substance: FAMOTIDINE
     Indication: Product used for unknown indication
     Route: 042
  25. FLUTICASONE PROPIONATE\SALMETEROL XINAFOATE [Concomitant]
     Active Substance: FLUTICASONE PROPIONATE\SALMETEROL XINAFOATE
     Indication: Product used for unknown indication
     Dosage: 2 PUFF, INHALATION
  26. FOLIC ACID [Concomitant]
     Active Substance: FOLIC ACID
     Indication: Product used for unknown indication
     Route: 048
  27. MIDODRINE [Concomitant]
     Active Substance: MIDODRINE
     Indication: Product used for unknown indication
     Route: 048
  28. SODIUM CHLORIDE [Concomitant]
     Active Substance: SODIUM CHLORIDE
     Indication: Product used for unknown indication
     Dosage: 10-30 ML
     Route: 042
  29. TERIPARATIDE [Concomitant]
     Active Substance: TERIPARATIDE
     Indication: Product used for unknown indication
     Dosage: 20 MCG
     Route: 058

REACTIONS (21)
  - Hysterectomy [Unknown]
  - Infection [Recovering/Resolving]
  - Pelvic inflammatory disease [Unknown]
  - Diverticulitis [Unknown]
  - Pleural effusion [Unknown]
  - Ureteric injury [Unknown]
  - Computerised tomogram abdomen abnormal [Unknown]
  - Hypercoagulation [Unknown]
  - Hydronephrosis [Unknown]
  - Immunodeficiency [Unknown]
  - Tubo-ovarian abscess [Unknown]
  - Endometrial thickening [Unknown]
  - Crohn^s disease [Unknown]
  - Conjunctivitis [Unknown]
  - Tobacco abuse [Unknown]
  - Hypothyroidism [Unknown]
  - Uterine abscess [Unknown]
  - Abdominal adhesions [Unknown]
  - Pelvic adhesions [Unknown]
  - Intestinal stenosis [Unknown]
  - Computerised tomogram thorax abnormal [Unknown]

NARRATIVE: CASE EVENT DATE: 20220507
